FAERS Safety Report 17171744 (Version 1)
Quarter: 2019Q4

REPORT INFORMATION
  Report Type: Spontaneous
  Country: SE (occurrence: SE)
  Receive Date: 20191218
  Receipt Date: 20191218
  Transmission Date: 20200122
  Serious: Yes (Hospitalization, Other)
  Sender: FDA-Public Use
  Company Number: SE-SA-2019SA345186

PATIENT
  Age: 68 Year
  Sex: Male

DRUGS (10)
  1. OMEPRAZOLE. [Suspect]
     Active Substance: OMEPRAZOLE
     Dosage: UNK
     Route: 048
     Dates: start: 20180415, end: 20180415
  2. ZOPICLONE [Suspect]
     Active Substance: ZOPICLONE
     Dosage: UNK
     Route: 048
     Dates: start: 20180415, end: 20180415
  3. PROPAVAN [Suspect]
     Active Substance: PROPIOMAZINE
     Dosage: UNK
     Route: 048
     Dates: start: 20180415, end: 20180415
  4. VITAMIN B-COMPLEX [Suspect]
     Active Substance: DEXPANTHENOL\NIACINAMIDE\PYRIDOXINE HYDROCHLORIDE\RIBOFLAVIN 5^-PHOSPHATE SODIUM\THIAMINE HYDROCHLORIDE
     Dosage: UNK
     Route: 048
     Dates: start: 20180415, end: 20180415
  5. HYDROXOCOBALAMIN [Suspect]
     Active Substance: HYDROXOCOBALAMIN
     Dosage: UNK
     Route: 048
     Dates: start: 20180415, end: 20180415
  6. NITRAZEPAM [Suspect]
     Active Substance: NITRAZEPAM
     Dosage: UNK
     Route: 048
     Dates: start: 20180415, end: 20180415
  7. CLOPIDOGREL BISULFATE. [Suspect]
     Active Substance: CLOPIDOGREL BISULFATE
     Dosage: UNK
     Route: 048
     Dates: start: 20180415, end: 20180415
  8. SIMVASTATIN. [Suspect]
     Active Substance: SIMVASTATIN
     Dosage: UNK
     Route: 048
     Dates: start: 20180415, end: 20180415
  9. LOSARTAN POTASSIUM. [Suspect]
     Active Substance: LOSARTAN POTASSIUM
     Dosage: UNK
     Route: 048
     Dates: start: 20180415, end: 20180415
  10. BISOPROLOL FUMARATE. [Suspect]
     Active Substance: BISOPROLOL FUMARATE
     Dosage: UNK
     Route: 048
     Dates: start: 20180415, end: 20180415

REACTIONS (3)
  - Fatigue [Unknown]
  - Intentional self-injury [Unknown]
  - Intentional overdose [Unknown]

NARRATIVE: CASE EVENT DATE: 20180415
